FAERS Safety Report 4640235-6 (Version None)
Quarter: 2005Q2

REPORT INFORMATION
  Report Type: 
  Country: None (occurrence: None)
  Receive Date: 20050420
  Receipt Date: 20050415
  Transmission Date: 20051028
  Serious: Yes (Other)
  Sender: FDA-Public Use
  Company Number: PHBS2005PL05459

PATIENT
  Age: 55 Year
  Sex: Male

DRUGS (7)
  1. ANTIBIOTICS [Suspect]
  2. BLOOD TRANSFUSION, AUXILIARY PRODUCTS [Concomitant]
  3. TREOSULFAN [Concomitant]
     Indication: STEM CELL TRANSPLANT
  4. BUSULFAN [Concomitant]
     Indication: STEM CELL TRANSPLANT
  5. FLUDARA [Concomitant]
     Indication: STEM CELL TRANSPLANT
  6. ATG [Concomitant]
     Indication: STEM CELL TRANSPLANT
  7. CYCLOSPORINE [Suspect]
     Indication: STEM CELL TRANSPLANT

REACTIONS (10)
  - APLASIA PURE RED CELL [None]
  - B-LYMPHOCYTE COUNT INCREASED [None]
  - BONE MARROW DEPRESSION [None]
  - BRONCHOPULMONARY ASPERGILLOSIS [None]
  - ERYTHEMA INFECTIOSUM [None]
  - ESCHERICHIA SEPSIS [None]
  - GRAFT LOSS [None]
  - HAEMOGLOBIN ABNORMAL [None]
  - RETICULOCYTOPENIA [None]
  - STEM CELL TRANSPLANT [None]
